FAERS Safety Report 7818180-4 (Version None)
Quarter: 2011Q4

REPORT INFORMATION
  Report Type: 
  Country: None (occurrence: None)
  Receive Date: 20111017
  Receipt Date: 20111004
  Transmission Date: 20120403
  Serious: Yes (Other)
  Sender: FDA-Public Use
  Company Number: DE-ELI_LILLY_AND_COMPANY-DE201110001579

PATIENT
  Age: 62 Year
  Sex: Female

DRUGS (9)
  1. LEVOTHYROXINE SODIUM [Concomitant]
     Dosage: 75 UG, QD
     Route: 048
     Dates: start: 20080101
  2. METFORMIN HYDROCHLORIDE [Concomitant]
     Dosage: 2000 MG, QD
     Route: 048
     Dates: start: 20080101
  3. HUMULIN N [Suspect]
     Indication: DIABETES MELLITUS
  4. TORSEMIDE [Concomitant]
     Dosage: 20 MG, QD
     Route: 048
     Dates: start: 20080101
  5. EBRANTIL                           /00631802/ [Concomitant]
     Dosage: UNK
     Route: 048
     Dates: start: 20080101
  6. LISINOPRIL [Concomitant]
     Dosage: UNK
     Route: 048
     Dates: start: 20080101
  7. LIPROLOG LISPRO [Suspect]
     Indication: DIABETES MELLITUS
     Dosage: 20 IU, TID
     Route: 058
     Dates: start: 20110701
  8. BISOPROLOL                         /00802602/ [Concomitant]
     Dosage: UNK
     Route: 048
     Dates: start: 20080101
  9. BIOTIN [Concomitant]
     Dosage: UNK
     Route: 048
     Dates: start: 20080101

REACTIONS (2)
  - WEIGHT BEARING DIFFICULTY [None]
  - DYSPNOEA [None]
